FAERS Safety Report 21017676 (Version 1)
Quarter: 2022Q2

REPORT INFORMATION
  Report Type: Spontaneous
  Country: US (occurrence: US)
  Receive Date: 20220628
  Receipt Date: 20220628
  Transmission Date: 20220721
  Serious: Yes (Other)
  Sender: FDA-Public Use
  Company Number: US-PFIZER INC-PV202200010255

PATIENT
  Age: 61 Year
  Sex: Male

DRUGS (2)
  1. VYNDAMAX [Suspect]
     Active Substance: TAFAMIDIS
     Dosage: UNK
  2. VYNDAQEL [Suspect]
     Active Substance: TAFAMIDIS MEGLUMINE
     Dosage: UNK

REACTIONS (18)
  - Hip arthroplasty [Unknown]
  - Knee arthroplasty [Unknown]
  - Cardiac failure chronic [Unknown]
  - Arrhythmia [Unknown]
  - Chronic kidney disease [Unknown]
  - Nephrogenic anaemia [Unknown]
  - Neuropathy peripheral [Unknown]
  - Malaise [Unknown]
  - Amyloidosis senile [Unknown]
  - Fatigue [Unknown]
  - Oedema peripheral [Unknown]
  - Dyspnoea [Unknown]
  - Tendon rupture [Unknown]
  - Carpal tunnel syndrome [Unknown]
  - Lumbar spinal stenosis [Unknown]
  - Gastrointestinal disorder [Unknown]
  - Eye symptom [Unknown]
  - Product dose omission issue [Unknown]
